FAERS Safety Report 14986481 (Version 1)
Quarter: 2018Q2

REPORT INFORMATION
  Report Type: Spontaneous
  Country: CN (occurrence: CN)
  Receive Date: 20180607
  Receipt Date: 20180607
  Transmission Date: 20180711
  Serious: Yes (Life-Threatening, Hospitalization, Other)
  Sender: FDA-Public Use
  Company Number: CN-BAXTER-2018BAX016329

PATIENT
  Age: 66 Year
  Sex: Male
  Weight: 65 kg

DRUGS (2)
  1. 0.9% SODIUM CHLORIDE INJECTION [Suspect]
     Active Substance: SODIUM CHLORIDE
     Indication: MEDICATION DILUTION
     Route: 041
     Dates: start: 20180319, end: 20180319
  2. CEREBROPROTEIN HYDROLYSATE [Suspect]
     Active Substance: PROTEIN HYDROLYSATE
     Indication: DRUG THERAPY
     Route: 041
     Dates: start: 20180319, end: 20180319

REACTIONS (3)
  - Chest discomfort [Recovering/Resolving]
  - Arrhythmia [Recovering/Resolving]
  - Chills [Recovering/Resolving]

NARRATIVE: CASE EVENT DATE: 20180319
